APPROVED DRUG PRODUCT: CHLORDIAZEPOXIDE AND AMITRIPTYLINE HYDROCHLORIDE
Active Ingredient: AMITRIPTYLINE HYDROCHLORIDE; CHLORDIAZEPOXIDE
Strength: EQ 12.5MG BASE;5MG
Dosage Form/Route: TABLET;ORAL
Application: A070477 | Product #001
Applicant: USL PHARMA INC
Approved: Jan 12, 1988 | RLD: No | RS: No | Type: DISCN